FAERS Safety Report 9304842 (Version 1)
Quarter: 2013Q2

REPORT INFORMATION
  Report Type: Spontaneous
  Country: GB (occurrence: GB)
  Receive Date: 20130523
  Receipt Date: 20130523
  Transmission Date: 20140414
  Serious: Yes (Hospitalization)
  Sender: FDA-Public Use
  Company Number: GB-ROCHE-1227614

PATIENT
  Age: 42 Year
  Sex: Male
  Weight: 115 kg

DRUGS (12)
  1. INTERFERON ALFA-2A [Suspect]
     Indication: PRODUCT USED FOR UNKNOWN INDICATION
     Route: 058
     Dates: start: 20120817, end: 20130430
  2. CLOZAPINE [Concomitant]
  3. COPEGUS [Concomitant]
     Route: 065
  4. DIAZEPAM [Concomitant]
  5. GABAPENTIN [Concomitant]
  6. LANSOPRAZOLE [Concomitant]
  7. MOVICOL [Concomitant]
  8. RAMIPRIL [Concomitant]
  9. SENNA [Concomitant]
  10. SUBOXONE [Concomitant]
  11. TRAMADOL [Concomitant]
  12. ZOPICLONE [Concomitant]

REACTIONS (3)
  - Pneumococcal bacteraemia [Not Recovered/Not Resolved]
  - Pneumonia pneumococcal [Unknown]
  - Weight decreased [Unknown]
